FAERS Safety Report 24023574 (Version 2)
Quarter: 2024Q2

REPORT INFORMATION
  Report Type: Report from Study
  Country: PT (occurrence: PT)
  Receive Date: 20240627
  Receipt Date: 20240628
  Transmission Date: 20240716
  Serious: No
  Sender: FDA-Public Use
  Company Number: PT-ROCHE-3251811

PATIENT
  Age: 72 Year
  Sex: Male
  Weight: 81.8 kg

DRUGS (21)
  1. ALECTINIB [Suspect]
     Active Substance: ALECTINIB
     Indication: Non-small cell lung cancer metastatic
     Route: 048
     Dates: start: 20211203
  2. FUROSEMIDE [Concomitant]
     Active Substance: FUROSEMIDE
     Route: 048
     Dates: end: 20230214
  3. FUROSEMIDE [Concomitant]
     Active Substance: FUROSEMIDE
     Route: 048
     Dates: start: 20230215
  4. APIXABAN [Concomitant]
     Active Substance: APIXABAN
     Route: 048
  5. APIXABAN [Concomitant]
     Active Substance: APIXABAN
     Route: 048
     Dates: start: 20220210
  6. BISOPROLOL [Concomitant]
     Active Substance: BISOPROLOL\BISOPROLOL FUMARATE
     Route: 048
  7. ALPRAZOLAM [Concomitant]
     Active Substance: ALPRAZOLAM
     Route: 048
  8. FLUTICASONE FUROATE\UMECLIDINIUM BROMIDE\VILANTEROL TRIFENATATE [Concomitant]
     Active Substance: FLUTICASONE FUROATE\UMECLIDINIUM BROMIDE\VILANTEROL TRIFENATATE
     Indication: Chronic obstructive pulmonary disease
     Route: 045
  9. ALLOPURINOL [Concomitant]
     Active Substance: ALLOPURINOL
     Route: 048
  10. ATORVASTATIN [Concomitant]
     Active Substance: ATORVASTATIN
     Indication: Dyslipidaemia
     Route: 048
  11. DAPAGLIFLOZIN [Concomitant]
     Active Substance: DAPAGLIFLOZIN
     Indication: Diabetes mellitus
     Route: 048
  12. ACETAMINOPHEN [Concomitant]
     Active Substance: ACETAMINOPHEN
     Indication: Back pain
     Dosage: FREQUENCY TEXT:AS REQUIRED
     Route: 048
     Dates: start: 20220520
  13. TRAMADOL [Concomitant]
     Active Substance: TRAMADOL\TRAMADOL HYDROCHLORIDE
     Indication: Back pain
     Route: 048
     Dates: start: 20221212, end: 20230214
  14. TRAMADOL [Concomitant]
     Active Substance: TRAMADOL\TRAMADOL HYDROCHLORIDE
     Route: 048
     Dates: start: 20230214, end: 20230215
  15. DEXAMETHASONE [Concomitant]
     Active Substance: DEXAMETHASONE
     Indication: Back pain
     Dosage: FREQUENCY TEXT:UNKNOWN
     Route: 048
     Dates: start: 20221212, end: 20221215
  16. DEXAMETHASONE [Concomitant]
     Active Substance: DEXAMETHASONE
     Dosage: FREQUENCY TEXT:UNKNOWN
     Route: 048
     Dates: start: 20221216, end: 20221218
  17. DEXAMETHASONE [Concomitant]
     Active Substance: DEXAMETHASONE
     Dosage: FREQUENCY TEXT:UNKNOWN
     Route: 048
     Dates: start: 20221219, end: 20221221
  18. DIGOXIN [Concomitant]
     Active Substance: DIGOXIN
     Indication: Atrial fibrillation
     Route: 048
  19. OMEPRAZOLE [Concomitant]
     Active Substance: DONEPEZIL HYDROCHLORIDE\OMEPRAZOLE\OMEPRAZOLE MAGNESIUM
     Route: 048
     Dates: start: 20230731
  20. TAMSULOSIN [Concomitant]
     Active Substance: TAMSULOSIN
     Route: 048
     Dates: start: 20230731
  21. FERRIC CARBOXYMALTOSE [Concomitant]
     Active Substance: FERRIC CARBOXYMALTOSE
     Indication: Iron deficiency
     Route: 042
     Dates: start: 20231116, end: 20231116

REACTIONS (1)
  - Constipation [Not Recovered/Not Resolved]

NARRATIVE: CASE EVENT DATE: 20221124
